FAERS Safety Report 10171958 (Version 2)
Quarter: 2014Q2

REPORT INFORMATION
  Report Type: Spontaneous
  Country: US (occurrence: US)
  Receive Date: 20140515
  Receipt Date: 20140610
  Transmission Date: 20141212
  Serious: No
  Sender: FDA-Public Use
  Company Number: US-PFIZER INC-2014128267

PATIENT
  Age: 70 Year
  Sex: Female

DRUGS (11)
  1. NEURONTIN [Suspect]
     Dosage: 300 MG, UNK
  2. INDERAL [Suspect]
     Dosage: UNK
  3. MORPHINE SULFATE [Suspect]
     Dosage: UNK
  4. VALIUM [Suspect]
     Dosage: UNK
  5. IMITREX [Suspect]
     Dosage: UNK
  6. DEMEROL [Suspect]
     Dosage: UNK
  7. CODEINE [Suspect]
     Dosage: UNK
  8. TALWIN [Suspect]
     Dosage: UNK
  9. ACTONEL [Suspect]
     Dosage: 35 MG, UNK
  10. FLEXERIL [Suspect]
     Dosage: UNK
  11. TRILEPTAL [Suspect]
     Dosage: 150 MG, UNK

REACTIONS (1)
  - Drug hypersensitivity [Unknown]
